FAERS Safety Report 13130361 (Version 2)
Quarter: 2017Q1

REPORT INFORMATION
  Report Type: Spontaneous
  Country: CN (occurrence: CN)
  Receive Date: 20170119
  Receipt Date: 20170228
  Transmission Date: 20170428
  Serious: Yes (Death)
  Sender: FDA-Public Use
  Company Number: CN-JNJFOC-20170109122

PATIENT
  Age: 82 Year
  Sex: Male

DRUGS (4)
  1. DUROGESIC D-TRANS [Suspect]
     Active Substance: FENTANYL
     Indication: CANCER PAIN
     Route: 062
     Dates: start: 20161223
  2. DUROGESIC D-TRANS [Suspect]
     Active Substance: FENTANYL
     Indication: CANCER PAIN
     Route: 062
  3. DUROGESIC D-TRANS [Suspect]
     Active Substance: FENTANYL
     Indication: CANCER PAIN
     Dosage: APPLIED TWO PATCHES AT THE SAME TIME
     Route: 062
  4. DUROGESIC D-TRANS [Suspect]
     Active Substance: FENTANYL
     Indication: CANCER PAIN
     Route: 062

REACTIONS (5)
  - Inappropriate schedule of drug administration [Unknown]
  - Dysphoria [Unknown]
  - Off label use [Unknown]
  - Therapeutic response decreased [Unknown]
  - Lung infection [Fatal]
